FAERS Safety Report 19404930 (Version 1)
Quarter: 2021Q2

REPORT INFORMATION
  Report Type: Spontaneous
  Country: US (occurrence: US)
  Receive Date: 20210611
  Receipt Date: 20210611
  Transmission Date: 20210717
  Serious: Yes (Other)
  Sender: FDA-Public Use
  Company Number: US-STRIDES ARCOLAB LIMITED-2021SP004156

PATIENT
  Age: 60 Year
  Sex: Female

DRUGS (9)
  1. PREDNISOLONE. [Suspect]
     Active Substance: PREDNISOLONE
     Dosage: 5 MILLIGRAM PER DAY
     Route: 048
  2. PREDNISOLONE. [Suspect]
     Active Substance: PREDNISOLONE
     Dosage: 80 MILLIGRAM PER DAY
     Route: 048
  3. PREDNISOLONE. [Suspect]
     Active Substance: PREDNISOLONE
     Dosage: 10 MILLIGRAM, WEEKLY
     Route: 048
  4. CHLORAMBUCIL [Concomitant]
     Active Substance: CHLORAMBUCIL
     Dosage: 2 MILLIGRAM, QOD
     Route: 065
  5. PREDNISOLONE. [Suspect]
     Active Substance: PREDNISOLONE
     Dosage: 2 MILLIGRAM PER DAY
     Route: 048
  6. CHLORAMBUCIL [Concomitant]
     Active Substance: CHLORAMBUCIL
     Indication: SERPIGINOUS CHOROIDITIS
     Dosage: UNK
     Route: 065
  7. PREDNISOLONE. [Suspect]
     Active Substance: PREDNISOLONE
     Indication: SERPIGINOUS CHOROIDITIS
     Dosage: UNK, DAILY
     Route: 048
  8. PREDNISOLONE. [Suspect]
     Active Substance: PREDNISOLONE
     Dosage: UNK, DOSE RESTARTED
     Route: 048
  9. CHLORAMBUCIL [Concomitant]
     Active Substance: CHLORAMBUCIL
     Dosage: 2 MILLIGRAM EVERY THREE DAYS
     Route: 065

REACTIONS (1)
  - Drug ineffective [Unknown]
